FAERS Safety Report 10051206 (Version 2)
Quarter: 2014Q2

REPORT INFORMATION
  Report Type: Spontaneous
  Country: US (occurrence: US)
  Receive Date: 20140401
  Receipt Date: 20140425
  Transmission Date: 20141212
  Serious: Yes (Congenital Anomaly, Other)
  Sender: FDA-Public Use
  Company Number: US-PFIZER INC-2014088744

PATIENT
  Sex: Male

DRUGS (11)
  1. ZOLOFT [Suspect]
     Indication: DEPRESSION
     Dosage: UNK
     Route: 064
     Dates: start: 20110114
  2. SERTRALINE HCL [Suspect]
     Indication: DEPRESSION
     Dosage: UNK
     Route: 064
     Dates: start: 20110114
  3. VITAMIN B-6 [Concomitant]
     Dosage: UNK
     Route: 064
  4. SUBUTEX [Concomitant]
     Dosage: UNK
     Route: 064
  5. ZOLPIDEM [Concomitant]
     Dosage: UNK
     Route: 064
  6. PHENERGAN [Concomitant]
     Dosage: UNK
     Route: 064
  7. OXYCODONE [Concomitant]
     Dosage: UNK
     Route: 064
  8. FOLIC ACID [Concomitant]
     Dosage: UNK
     Route: 064
  9. METHADONE [Concomitant]
     Dosage: UNK
     Route: 064
  10. PRENATAL TAB PLUS WITH IRON [Concomitant]
     Dosage: UNK
     Route: 064
  11. VISTARIL [Concomitant]
     Dosage: UNK
     Route: 064

REACTIONS (3)
  - Maternal exposure during pregnancy [Unknown]
  - Talipes [Unknown]
  - Congenital anomaly [Unknown]
